FAERS Safety Report 13245577 (Version 1)
Quarter: 2017Q1

REPORT INFORMATION
  Report Type: Spontaneous
  Country: HR (occurrence: HR)
  Receive Date: 20170217
  Receipt Date: 20170217
  Transmission Date: 20170428
  Serious: Yes (Other)
  Sender: FDA-Public Use
  Company Number: HR-FRESENIUS KABI-FK201701189

PATIENT
  Age: 80 Year
  Sex: Male

DRUGS (1)
  1. MOXIFLOXACIN INJECTION [Suspect]
     Active Substance: MOXIFLOXACIN
     Indication: PNEUMONIA
     Route: 042
     Dates: start: 20170109, end: 20170112

REACTIONS (5)
  - Hepatic congestion [Recovered/Resolved]
  - Blood creatine phosphokinase increased [Recovered/Resolved]
  - Alanine aminotransferase increased [Recovered/Resolved]
  - Hepatotoxicity [Recovered/Resolved]
  - Aspartate aminotransferase increased [Recovered/Resolved]

NARRATIVE: CASE EVENT DATE: 20170111
